FAERS Safety Report 7205825-5 (Version None)
Quarter: 2010Q4

REPORT INFORMATION
  Report Type: 
  Country: None (occurrence: None)
  Receive Date: 20101231
  Receipt Date: 20101229
  Transmission Date: 20110411
  Serious: Yes (Other)
  Sender: FDA-Public Use
  Company Number: US-MERCK-0907USA04007

PATIENT
  Age: 52 Year
  Sex: Female
  Weight: 84 kg

DRUGS (4)
  1. FOSAMAX [Suspect]
     Indication: OSTEOPENIA
     Route: 048
     Dates: start: 20040204, end: 20061001
  2. PLAVIX [Concomitant]
     Indication: THROMBOSIS PROPHYLAXIS
     Route: 065
     Dates: start: 20000101
  3. ZOLOFT [Concomitant]
     Indication: EMOTIONAL DISORDER
     Route: 048
     Dates: start: 20000101
  4. ZOLOFT [Concomitant]
     Indication: DEPRESSION
     Route: 048
     Dates: start: 20000101

REACTIONS (29)
  - ARTHRALGIA [None]
  - BLOOD TRIGLYCERIDES INCREASED [None]
  - CARDIAC MURMUR [None]
  - CHRONIC OBSTRUCTIVE PULMONARY DISEASE [None]
  - DIARRHOEA [None]
  - FOOT FRACTURE [None]
  - FRACTURE [None]
  - GASTROINTESTINAL PAIN [None]
  - GASTROOESOPHAGEAL REFLUX DISEASE [None]
  - HAEMORRHOIDS [None]
  - HYPERTENSION [None]
  - IMPAIRED FASTING GLUCOSE [None]
  - INSOMNIA [None]
  - MITRAL VALVE INCOMPETENCE [None]
  - NECK PAIN [None]
  - OEDEMA [None]
  - ORAL TORUS [None]
  - OSTEONECROSIS OF JAW [None]
  - OSTEOPOROSIS [None]
  - PANCREATIC MASS [None]
  - PERIODONTAL DISEASE [None]
  - PERIODONTITIS [None]
  - POLYP COLORECTAL [None]
  - PULMONARY GRANULOMA [None]
  - RECTAL HAEMORRHAGE [None]
  - SCIATICA [None]
  - SPONDYLITIS [None]
  - SYNCOPE [None]
  - TOOTH DEPOSIT [None]
